FAERS Safety Report 13057067 (Version 1)
Quarter: 2016Q4

REPORT INFORMATION
  Report Type: Spontaneous
  Country: TW (occurrence: TW)
  Receive Date: 20161222
  Receipt Date: 20161222
  Transmission Date: 20170207
  Serious: Yes (Other)
  Sender: FDA-Public Use
  Company Number: PHHY2016TW140422

PATIENT
  Age: 53 Year
  Sex: Female

DRUGS (11)
  1. CLOZAPINE. [Interacting]
     Active Substance: CLOZAPINE
     Dosage: 100 MG (3.5(UNKNOWN UNIT)/HS)
     Route: 065
  2. CLOZAPINE. [Interacting]
     Active Substance: CLOZAPINE
     Dosage: 100 MG, (0.5(UNKNOWN UNIT) /TID)
     Route: 065
     Dates: start: 20140125
  3. VALPROIC ACID. [Suspect]
     Active Substance: VALPROIC ACID
     Indication: SCHIZOPHRENIA
     Dosage: 500 MG, 1(UNKNOWN UNIT)/TID
     Route: 065
     Dates: start: 20140125
  4. HALOPERIDOL. [Concomitant]
     Active Substance: HALOPERIDOL
     Indication: SCHIZOPHRENIA
     Dosage: 5 MG, 1(UNKNOWN UNIT)/AM
     Route: 065
  5. TRIHEXYPHENIDYL [Concomitant]
     Active Substance: TRIHEXYPHENIDYL
     Indication: SCHIZOPHRENIA
     Dosage: 2 MG, 1(UNKNOWN UNIT)/AM
     Route: 065
  6. OLANZAPINE. [Concomitant]
     Active Substance: OLANZAPINE
     Indication: SCHIZOPHRENIA
     Dosage: 10 MG, 1(UNKNOWN UNIT)/HS
     Route: 065
  7. LORAZEPAM. [Interacting]
     Active Substance: LORAZEPAM
     Indication: SCHIZOPHRENIA
     Dosage: 0.5 MG, 1(UNKNOWN UNIT)/AM
     Route: 065
  8. CLONAZEPAM. [Interacting]
     Active Substance: CLONAZEPAM
     Indication: SCHIZOPHRENIA
     Dosage: 0.5 MG, 1(UNKNOWN UNIT)/TID
     Route: 065
     Dates: start: 20140122
  9. CLOZAPINE. [Interacting]
     Active Substance: CLOZAPINE
     Indication: SCHIZOPHRENIA
     Dosage: UNK
     Route: 065
  10. CLOZAPINE. [Interacting]
     Active Substance: CLOZAPINE
     Dosage: 100 MG (3(UNKNOWN UNIT)/HS)
     Route: 065
     Dates: start: 20131112
  11. CLOZAPINE. [Interacting]
     Active Substance: CLOZAPINE
     Dosage: 100 MG (0.5(UNKNOWN UNIT)/AM)
     Route: 065

REACTIONS (11)
  - Burnout syndrome [Unknown]
  - Productive cough [Unknown]
  - Drug effect decreased [Unknown]
  - Gait disturbance [Unknown]
  - Pneumonia [Unknown]
  - Asthenia [Unknown]
  - Wheezing [Unknown]
  - Somnolence [Unknown]
  - Drug interaction [Unknown]
  - Dysarthria [Unknown]
  - Wrong technique in product usage process [Unknown]

NARRATIVE: CASE EVENT DATE: 20140125
